FAERS Safety Report 7909849-1 (Version None)
Quarter: 2011Q4

REPORT INFORMATION
  Report Type: 
  Country: None (occurrence: None)
  Receive Date: 20111111
  Receipt Date: 20111109
  Transmission Date: 20120403
  Serious: Yes (Life-Threatening, Disabling, Other)
  Sender: FDA-Public Use
  Company Number: US-MERCK-1110USA02467

PATIENT
  Age: 16 Year
  Sex: Male
  Weight: 71 kg

DRUGS (2)
  1. SINGULAIR [Suspect]
     Route: 048
     Dates: start: 20111001, end: 20111001
  2. SINGULAIR [Suspect]
     Indication: RHINITIS ALLERGIC
     Route: 048
     Dates: start: 20101101, end: 20110401

REACTIONS (2)
  - SUICIDAL IDEATION [None]
  - PANIC ATTACK [None]
